FAERS Safety Report 6876886-8 (Version None)
Quarter: 2010Q2

REPORT INFORMATION
  Report Type: 
  Country: None (occurrence: None)
  Receive Date: 20100616
  Receipt Date: 20100420
  Transmission Date: 20101027
  Serious: No
  Sender: FDA-Public Use
  Company Number: DSA_43017_2010

PATIENT
  Sex: Female
  Weight: 60 kg

DRUGS (3)
  1. XENAZINE [Suspect]
     Indication: HUNTINGTON'S CHOREA
     Dosage: (12.5 MG BID ORAL)
     Route: 048
     Dates: start: 20090901, end: 20100101
  2. HOLDOL /00027401/ [Concomitant]
  3. AVAPRO [Concomitant]

REACTIONS (1)
  - WEIGHT INCREASED [None]
